FAERS Safety Report 12313682 (Version 1)
Quarter: 2016Q2

REPORT INFORMATION
  Report Type: Spontaneous
  Country: JP (occurrence: JP)
  Receive Date: 20160428
  Receipt Date: 20160428
  Transmission Date: 20160815
  Serious: Yes (Other)
  Sender: FDA-Public Use
  Company Number: JP-ELI_LILLY_AND_COMPANY-JP201604008472

PATIENT
  Age: 69 Year
  Sex: Male

DRUGS (1)
  1. ERBITUX [Suspect]
     Active Substance: CETUXIMAB
     Indication: SQUAMOUS CELL CARCINOMA OF HEAD AND NECK
     Dosage: UNK UNK, UNKNOWN
     Route: 042
     Dates: start: 20150707, end: 20150820

REACTIONS (9)
  - Dermatitis acneiform [Recovered/Resolved]
  - Radiation skin injury [Recovering/Resolving]
  - Decreased appetite [Recovered/Resolved]
  - Pneumonia bacterial [Recovered/Resolved]
  - Stomatitis [Recovered/Resolved]
  - Pharyngeal inflammation [Recovering/Resolving]
  - Dry mouth [Not Recovered/Not Resolved]
  - Paronychia [Recovered/Resolved]
  - Dry skin [Recovered/Resolved]

NARRATIVE: CASE EVENT DATE: 20150710
